FAERS Safety Report 14922279 (Version 4)
Quarter: 2019Q1

REPORT INFORMATION
  Report Type: Report from Study
  Country: IL (occurrence: IL)
  Receive Date: 20180522
  Receipt Date: 20190128
  Transmission Date: 20190417
  Serious: Yes (Other)
  Sender: FDA-Public Use
  Company Number: IL-ROCHE-2122357

PATIENT
  Age: 84 Year
  Sex: Male
  Weight: 71.7 kg

DRUGS (9)
  1. OBINUTUZUMAB. [Suspect]
     Active Substance: OBINUTUZUMAB
     Indication: CHRONIC LYMPHOCYTIC LEUKAEMIA
     Dosage: DOSE CONCENTRATION OF LAST OBINUTUZUMAB ADMINISTERED 4 MG/ML. VOLUME OF LAST OBINUTUZUMAB ADMINISTER
     Route: 042
     Dates: start: 20171008
  2. CHLORAMBUCIL [Suspect]
     Active Substance: CHLORAMBUCIL
     Indication: CHRONIC LYMPHOCYTIC LEUKAEMIA
     Dosage: DOSE OF LAST CHLORAMBUCIL ADMINISTERED 16 MG. DATE OF MOST RECENT DOSE OF CHLORAMBUCIL PRIOR AE ONSE
     Route: 048
     Dates: start: 20171008
  3. ALLURAL [Concomitant]
     Indication: NEPHROLITHIASIS
  4. OMEPRADEX [Concomitant]
     Active Substance: OMEPRAZOLE
     Indication: HYPERCHLORHYDRIA
  5. SLOW K [Concomitant]
     Active Substance: POTASSIUM CHLORIDE
     Indication: HYPOKALAEMIA
  6. TOCILIZUMAB. [Suspect]
     Active Substance: TOCILIZUMAB
     Indication: CHRONIC LYMPHOCYTIC LEUKAEMIA
     Dosage: DATE OF MOST RECENT DOSE OF TOCILIZUMAB PRIOR AE ONSET 08/OCT/2017 AT 09:30
     Route: 042
     Dates: start: 20171008
  7. DISOTHIAZIDE [Concomitant]
     Active Substance: HYDROCHLOROTHIAZIDE
     Indication: HYPERTENSION
  8. SIMVASTATIN. [Concomitant]
     Active Substance: SIMVASTATIN
     Indication: HYPERLIPIDAEMIA
  9. DEXAMETHASONE. [Concomitant]
     Active Substance: DEXAMETHASONE
     Indication: PREMEDICATION
     Route: 065
     Dates: start: 20171022, end: 20180322

REACTIONS (1)
  - Squamous cell carcinoma of skin [Not Recovered/Not Resolved]

NARRATIVE: CASE EVENT DATE: 20180322
